FAERS Safety Report 12660647 (Version 3)
Quarter: 2016Q3

REPORT INFORMATION
  Report Type: Spontaneous
  Country: IT (occurrence: IT)
  Receive Date: 20160817
  Receipt Date: 20160831
  Transmission Date: 20161109
  Serious: Yes (Other)
  Sender: FDA-Public Use
  Company Number: IT-TEVA-685243ISR

PATIENT
  Age: 16 Year
  Sex: Female

DRUGS (1)
  1. SERTRALINE [Suspect]
     Active Substance: SERTRALINE HYDROCHLORIDE
     Indication: SUICIDE ATTEMPT
     Dosage: 20 PILLS OF 100MG SERTRALINE (2000MG)

REACTIONS (8)
  - Intentional overdose [Unknown]
  - Anxiety [Unknown]
  - Tension [Unknown]
  - Patient uncooperative [Unknown]
  - Delusion of reference [Unknown]
  - Toxicity to various agents [Unknown]
  - Depressed mood [Unknown]
  - Serotonin syndrome [Unknown]
